FAERS Safety Report 24928538 (Version 2)
Quarter: 2025Q3

REPORT INFORMATION
  Report Type: Report from Study
  Country: US (occurrence: US)
  Receive Date: 20250205
  Receipt Date: 20250711
  Transmission Date: 20251020
  Serious: Yes (Other)
  Sender: MERCK SHARP & DOHME LLC
  Company Number: US-009507513-2502USA001287

PATIENT
  Sex: Male
  Weight: 78.458 kg

DRUGS (24)
  1. WINREVAIR [Suspect]
     Active Substance: SOTATERCEPT-CSRK
     Indication: Product used for unknown indication
     Dates: start: 20241028
  2. WINREVAIR [Suspect]
     Active Substance: SOTATERCEPT-CSRK
  3. WINREVAIR [Suspect]
     Active Substance: SOTATERCEPT-CSRK
  4. WINREVAIR [Suspect]
     Active Substance: SOTATERCEPT-CSRK
  5. WINREVAIR [Suspect]
     Active Substance: SOTATERCEPT-CSRK
  6. WINREVAIR [Suspect]
     Active Substance: SOTATERCEPT-CSRK
  7. WINREVAIR [Suspect]
     Active Substance: SOTATERCEPT-CSRK
  8. WINREVAIR [Suspect]
     Active Substance: SOTATERCEPT-CSRK
  9. TYVASO DPI [Suspect]
     Active Substance: TREPROSTINIL
     Indication: Pulmonary arterial hypertension
     Dosage: DOSE DESCRIPTION : 64 MICROGRAM, QID, STRENGTH UNKNOWN?DAILY DOSE : 256 MICROGRAM
     Route: 055
     Dates: start: 20230809
  10. TYVASO DPI [Suspect]
     Active Substance: TREPROSTINIL
     Indication: Pulmonary arterial hypertension
     Route: 055
  11. TRULICITY [Concomitant]
     Active Substance: DULAGLUTIDE
  12. FUROSEMIDE [Concomitant]
     Active Substance: FUROSEMIDE
  13. LOSARTAN POTASSIUM [Concomitant]
     Active Substance: LOSARTAN POTASSIUM
  14. TADALAFIL [Concomitant]
     Active Substance: TADALAFIL
  15. ALLOPURINOL [Concomitant]
     Active Substance: ALLOPURINOL
  16. ASPIRIN [Concomitant]
     Active Substance: ASPIRIN
  17. ROSUVASTATIN CALCIUM [Concomitant]
     Active Substance: ROSUVASTATIN CALCIUM
  18. CALCITRIOL [Concomitant]
     Active Substance: CALCITRIOL
  19. OPSUMIT [Concomitant]
     Active Substance: MACITENTAN
  20. OFEV [Concomitant]
     Active Substance: NINTEDANIB
  21. VITAMIN D3 [Concomitant]
     Active Substance: CHOLECALCIFEROL
  22. OXYGEN [Concomitant]
     Active Substance: OXYGEN
  23. VITAMIN B12 [Concomitant]
     Active Substance: CYANOCOBALAMIN
  24. OMEPRAZOLE [Concomitant]
     Active Substance: OMEPRAZOLE

REACTIONS (6)
  - Prostate cancer [Unknown]
  - Diarrhoea [Recovered/Resolved]
  - Eye haemorrhage [Unknown]
  - Gingival bleeding [Unknown]
  - Epistaxis [Unknown]
  - Dyspepsia [Recovered/Resolved]

NARRATIVE: CASE EVENT DATE: 20250101
